FAERS Safety Report 15066754 (Version 1)
Quarter: 2018Q2

REPORT INFORMATION
  Report Type: Spontaneous
  Country: IL (occurrence: IL)
  Receive Date: 20180626
  Receipt Date: 20180626
  Transmission Date: 20180711
  Serious: Yes (Other)
  Sender: FDA-Public Use
  Company Number: IL-BAYER-2018-117775

PATIENT
  Age: 31 Year
  Sex: Female

DRUGS (1)
  1. JANESS [Suspect]
     Active Substance: LEVONORGESTREL
     Indication: CONTRACEPTION
     Dosage: 14 MCG/24HR, CONT
     Route: 015

REACTIONS (3)
  - Genital haemorrhage [None]
  - Uterine cyst [None]
  - Abdominal pain lower [None]
